FAERS Safety Report 12550016 (Version 3)
Quarter: 2016Q3

REPORT INFORMATION
  Report Type: Report from Study
  Country: BR (occurrence: BR)
  Receive Date: 20160712
  Receipt Date: 20160922
  Transmission Date: 20161109
  Serious: Yes (Other)
  Sender: FDA-Public Use
  Company Number: BR-ABBVIE-16K-020-1671457-00

PATIENT
  Sex: Female
  Weight: 48 kg

DRUGS (8)
  1. VENLAFAXINE [Concomitant]
     Active Substance: VENLAFAXINE HYDROCHLORIDE
     Indication: DEPRESSION
     Route: 048
     Dates: start: 2010
  2. CHLOROQUINE. [Concomitant]
     Active Substance: CHLOROQUINE
     Indication: ARTHRITIS
     Route: 048
     Dates: start: 2010
  3. HUMIRA [Suspect]
     Active Substance: ADALIMUMAB
     Indication: PSORIATIC ARTHROPATHY
     Route: 058
  4. TRAMADOL. [Concomitant]
     Active Substance: TRAMADOL
     Indication: ARTHRITIS
     Route: 048
     Dates: start: 2010
  5. FAMOTIDINE. [Concomitant]
     Active Substance: FAMOTIDINE
     Indication: ARTHRITIS
     Route: 048
     Dates: start: 2010
  6. ALPRAZOLAM. [Concomitant]
     Active Substance: ALPRAZOLAM
     Indication: DEPRESSION
     Route: 048
     Dates: start: 20040301
  7. DICLOFENAC SODIUM. [Concomitant]
     Active Substance: DICLOFENAC SODIUM
     Indication: ARTHRITIS
     Route: 048
     Dates: start: 2010
  8. TIBOLONE [Concomitant]
     Active Substance: TIBOLONE
     Indication: HORMONE REPLACEMENT THERAPY
     Route: 048
     Dates: start: 2012

REACTIONS (11)
  - Somnolence [Unknown]
  - Blister [Unknown]
  - Ligament rupture [Unknown]
  - Insomnia [Recovering/Resolving]
  - Blister [Not Recovered/Not Resolved]
  - Swelling [Unknown]
  - Pruritus [Not Recovered/Not Resolved]
  - Skin wound [Not Recovered/Not Resolved]
  - Musculoskeletal pain [Not Recovered/Not Resolved]
  - Blister rupture [Unknown]
  - Drug hypersensitivity [Unknown]

NARRATIVE: CASE EVENT DATE: 2013
